FAERS Safety Report 9732076 (Version 1)
Quarter: 2013Q4

REPORT INFORMATION
  Report Type: Spontaneous
  Country: MA (occurrence: MA)
  Receive Date: 20131205
  Receipt Date: 20131205
  Transmission Date: 20140711
  Serious: Yes (Other)
  Sender: FDA-Public Use
  Company Number: MA-BAYER-2013-144567

PATIENT
  Age: 69 Year
  Sex: Male

DRUGS (4)
  1. AVELOX [Suspect]
     Indication: CHRONIC OBSTRUCTIVE PULMONARY DISEASE
     Dosage: UNK
     Route: 048
     Dates: start: 20121221, end: 20121228
  2. SOLUPRED (PREDNISOLONE) [Suspect]
     Dosage: 3 DF, UNK
  3. SPIRIVA [Suspect]
     Dosage: UNK
  4. CARBOCISTEINE [Suspect]

REACTIONS (3)
  - Cerebrovascular accident [None]
  - Hypoaesthesia [None]
  - Speech disorder developmental [None]
